FAERS Safety Report 6200878-5 (Version None)
Quarter: 2009Q2

REPORT INFORMATION
  Report Type: 
  Country: None (occurrence: None)
  Receive Date: 20090523
  Receipt Date: 20081020
  Transmission Date: 20091009
  Serious: No
  Sender: FDA-Public Use
  Company Number: US-ALEXION-A200800299

PATIENT
  Sex: Female

DRUGS (2)
  1. SOLIRIS [Suspect]
     Dosage: UNK, UNK
  2. SOLIRIS [Suspect]
     Dosage: MAINTENANCE DOSE
     Dates: start: 20081027

REACTIONS (1)
  - HEADACHE [None]
